FAERS Safety Report 25258419 (Version 4)
Quarter: 2025Q2

REPORT INFORMATION
  Report Type: Report from Study
  Country: CA (occurrence: CA)
  Receive Date: 20250501
  Receipt Date: 20250516
  Transmission Date: 20250716
  Serious: Yes (Death, Hospitalization, Other)
  Sender: ALEXION PHARMACEUTICALS
  Company Number: CA-AstraZeneca-CH-00857783A

PATIENT
  Age: 72 Year

DRUGS (1)
  1. ACALABRUTINIB [Suspect]
     Active Substance: ACALABRUTINIB
     Indication: Chronic lymphocytic leukaemia
     Dosage: 100 MILLIGRAM, Q12H

REACTIONS (4)
  - Death [Fatal]
  - Head injury [Unknown]
  - Fall [Unknown]
  - Unresponsive to stimuli [Unknown]
